FAERS Safety Report 8013229-0 (Version None)
Quarter: 2011Q4

REPORT INFORMATION
  Report Type: 
  Country: None (occurrence: None)
  Receive Date: 20111229
  Receipt Date: 20111229
  Transmission Date: 20120403
  Serious: Yes (Hospitalization)
  Sender: FDA-Public Use
  Company Number: None

PATIENT
  Sex: Female

DRUGS (1)
  1. DIGOXIN [Suspect]
     Dosage: 1 TABLET
     Route: 048

REACTIONS (9)
  - ABDOMINAL PAIN [None]
  - DRUG INTOLERANCE [None]
  - NAUSEA [None]
  - TOXICITY TO VARIOUS AGENTS [None]
  - CARDIOACTIVE DRUG LEVEL INCREASED [None]
  - VOMITING [None]
  - DRUG LEVEL BELOW THERAPEUTIC [None]
  - BLOOD AMYLASE INCREASED [None]
  - LIPASE INCREASED [None]
